FAERS Safety Report 11184468 (Version 1)
Quarter: 2015Q2

REPORT INFORMATION
  Report Type: Spontaneous
  Country: US (occurrence: US)
  Receive Date: 20150612
  Receipt Date: 20150612
  Transmission Date: 20150821
  Serious: No
  Sender: FDA-Public Use
  Company Number: US-TEVA-569622USA

PATIENT
  Age: 57 Year
  Sex: Female
  Weight: 92.62 kg

DRUGS (1)
  1. ACTIQ [Suspect]
     Active Substance: FENTANYL CITRATE
     Indication: CANCER PAIN
     Dosage: 400 (UNABLE TO IDENTIFY UNITS) ON IT FOR SEVERAL YEARS 5 X /DAY
     Route: 048
     Dates: end: 20150531

REACTIONS (4)
  - Screaming [Not Recovered/Not Resolved]
  - Withdrawal syndrome [Not Recovered/Not Resolved]
  - Neoplasm [Unknown]
  - Pain [Not Recovered/Not Resolved]

NARRATIVE: CASE EVENT DATE: 20150601
